FAERS Safety Report 16936960 (Version 5)
Quarter: 2020Q1

REPORT INFORMATION
  Report Type: Spontaneous
  Country: FR (occurrence: FR)
  Receive Date: 20191018
  Receipt Date: 20200318
  Transmission Date: 20200409
  Serious: Yes (Hospitalization, Other)
  Sender: FDA-Public Use
  Company Number: NVSC2019FR008032

PATIENT
  Age: 20 Year
  Sex: Female

DRUGS (4)
  1. AZATHIOPRINE. [Concomitant]
     Active Substance: AZATHIOPRINE
     Indication: CROHN^S DISEASE
     Dosage: UNK
     Route: 065
  2. ADALIMUMAB [Suspect]
     Active Substance: ADALIMUMAB
     Dosage: UNK
     Route: 065
  3. USTEKINUMAB [Suspect]
     Active Substance: USTEKINUMAB
     Indication: SPONDYLOARTHROPATHY
     Dosage: UNK
     Route: 065
  4. ADALIMUMAB [Suspect]
     Active Substance: ADALIMUMAB
     Indication: CROHN^S DISEASE
     Dosage: UNK
     Route: 065

REACTIONS (18)
  - Skin necrosis [Unknown]
  - Nervous system disorder [Recovered/Resolved]
  - Proteinuria [Recovering/Resolving]
  - Motor dysfunction [Recovering/Resolving]
  - Henoch-Schonlein purpura [Recovered/Resolved]
  - Rectal haemorrhage [Recovering/Resolving]
  - Neuropathy peripheral [Unknown]
  - Viral infection [Unknown]
  - Rash pustular [Recovering/Resolving]
  - Purpura [Recovering/Resolving]
  - Arthralgia [Recovering/Resolving]
  - Vascular purpura [Unknown]
  - Neurological symptom [Recovered/Resolved]
  - Joint swelling [Unknown]
  - Sciatic nerve injury [Recovering/Resolving]
  - Leukocytosis [Recovering/Resolving]
  - Axial spondyloarthritis [Recovering/Resolving]
  - Nasopharyngitis [Unknown]
